FAERS Safety Report 9738716 (Version 3)
Quarter: 2014Q4

REPORT INFORMATION
  Report Type: Report from Study
  Country: DE (occurrence: DE)
  Receive Date: 20131209
  Receipt Date: 20141106
  Transmission Date: 20150529
  Serious: Yes (Death, Hospitalization)
  Sender: FDA-Public Use
  Company Number: DE-BRISTOL-MYERS SQUIBB COMPANY-19875772

PATIENT
  Age: 62 Year
  Sex: Female
  Weight: 44 kg

DRUGS (3)
  1. CETUXIMAB [Suspect]
     Active Substance: CETUXIMAB
     Indication: HEAD AND NECK CANCER
     Route: 042
     Dates: start: 20131023, end: 20131128
  2. FLUOROURACIL. [Suspect]
     Active Substance: FLUOROURACIL
     Indication: HEAD AND NECK CANCER
     Route: 042
     Dates: start: 20131023, end: 20131128
  3. CISPLATIN. [Suspect]
     Active Substance: CISPLATIN
     Indication: HEAD AND NECK CANCER
     Route: 042
     Dates: start: 20131023, end: 20131128

REACTIONS (1)
  - Infection [Fatal]

NARRATIVE: CASE EVENT DATE: 20131127
